FAERS Safety Report 6145501-3 (Version None)
Quarter: 2009Q2

REPORT INFORMATION
  Report Type: 
  Country: None (occurrence: None)
  Receive Date: 20090402
  Receipt Date: 20090318
  Transmission Date: 20091009
  Serious: Yes (Death, Hospitalization, Other)
  Sender: FDA-Public Use
  Company Number: 2009000841

PATIENT
  Age: 83 Year
  Sex: Female

DRUGS (20)
  1. TARCEVA [Suspect]
     Indication: LUNG NEOPLASM MALIGNANT
     Dosage: (1 TABLET QD), ORAL
     Route: 048
     Dates: start: 20090131, end: 20090222
  2. 10% DEXTROSE (GLUCOSE INJECTION) [Concomitant]
  3. DEXTROSE 5% IN WATER (GLUCOSE) [Concomitant]
  4. IV NS 0.9% (SODIUM CHLORIDE) [Concomitant]
  5. HYPERTONIC SALINE [Concomitant]
  6. KALIUM (POTASSIUM CHLORIDE) [Concomitant]
  7. ASCORBIC ACID [Concomitant]
  8. VITAMIN B6 [Concomitant]
  9. INSULIN (INSULIN) [Concomitant]
  10. TRAMUNDIN RETARD (TRAMADOL HYDROCHLORIDE) [Concomitant]
  11. OPTIPECT KODEIN (CODEINE) [Concomitant]
  12. FAT EMULSION (FAT EMULSIONS) [Concomitant]
  13. MEDROXYPROGESTERONE [Concomitant]
  14. AMINO ACIDS (AMINO ACIDS) [Concomitant]
  15. GLUTATHIONE (GLUTATHIONE) [Concomitant]
  16. IPERACILLIN [Concomitant]
  17. ZOMETA [Concomitant]
  18. DEXA INJECTABLE [Concomitant]
  19. MEPERIDINE HCL [Concomitant]
  20. BUCINNAZINE HYDROCHLORIDE [Concomitant]

REACTIONS (14)
  - ALANINE AMINOTRANSFERASE INCREASED [None]
  - ASPARTATE AMINOTRANSFERASE INCREASED [None]
  - BLOOD ALBUMIN INCREASED [None]
  - BLOOD ALKALINE PHOSPHATASE INCREASED [None]
  - BONE PAIN [None]
  - ELECTROLYTE IMBALANCE [None]
  - GAMMA-GLUTAMYLTRANSFERASE INCREASED [None]
  - HEPATIC FUNCTION ABNORMAL [None]
  - LIVER FUNCTION TEST ABNORMAL [None]
  - PLATELET COUNT DECREASED [None]
  - RED BLOOD CELLS URINE [None]
  - SUDDEN CARDIAC DEATH [None]
  - WHITE BLOOD CELL COUNT INCREASED [None]
  - WHITE BLOOD CELLS URINE [None]
